FAERS Safety Report 22303441 (Version 4)
Quarter: 2023Q4

REPORT INFORMATION
  Report Type: Report from Study
  Country: US (occurrence: US)
  Receive Date: 20230510
  Receipt Date: 20231219
  Transmission Date: 20240109
  Serious: Yes (Other)
  Sender: FDA-Public Use
  Company Number: US-ABBVIE-4760116

PATIENT
  Sex: Female

DRUGS (2)
  1. RINVOQ [Suspect]
     Active Substance: UPADACITINIB
     Indication: Psoriatic arthropathy
     Dosage: FORM STRENGTH: 15 MG   LAST ADMIN DATE 2023
     Route: 048
     Dates: start: 202303
  2. RINVOQ [Suspect]
     Active Substance: UPADACITINIB
     Indication: Psoriatic arthropathy
     Dosage: STENGHT: 30 MG
     Route: 048
     Dates: start: 2023

REACTIONS (31)
  - Cataract [Unknown]
  - Muscle spasms [Unknown]
  - Nerve block [Unknown]
  - Pain [Not Recovered/Not Resolved]
  - Peripheral swelling [Unknown]
  - Fatigue [Not Recovered/Not Resolved]
  - Osteoarthritis [Unknown]
  - Tendon injury [Unknown]
  - Nerve block [Unknown]
  - Haemoglobin decreased [Unknown]
  - Muscular weakness [Unknown]
  - Blood urea increased [Unknown]
  - Oedema peripheral [Unknown]
  - Stomatitis [Unknown]
  - Fall [Unknown]
  - Ligament sprain [Unknown]
  - Dry skin [Unknown]
  - Foot deformity [Unknown]
  - Noninfective gingivitis [Unknown]
  - Contusion [Unknown]
  - Limb discomfort [Unknown]
  - Musculoskeletal pain [Unknown]
  - Arthropathy [Unknown]
  - Sleep disorder [Unknown]
  - Psoriasis [Unknown]
  - Skin mass [Unknown]
  - Intervertebral disc protrusion [Unknown]
  - Back pain [Unknown]
  - Somnolence [Unknown]
  - Spinal stenosis [Unknown]
  - Hypoaesthesia [Unknown]

NARRATIVE: CASE EVENT DATE: 20230101
